FAERS Safety Report 17672912 (Version 2)
Quarter: 2020Q2

REPORT INFORMATION
  Report Type: Spontaneous
  Country: US (occurrence: US)
  Receive Date: 20200415
  Receipt Date: 20200421
  Transmission Date: 20200713
  Serious: No
  Sender: FDA-Public Use
  Company Number: US-009507513-2004USA004372

PATIENT

DRUGS (1)
  1. SYLATRON [Suspect]
     Active Substance: PEGINTERFERON ALFA-2B
     Indication: BRAIN NEOPLASM
     Dosage: 50 MICROGRAM

REACTIONS (3)
  - No adverse event [Unknown]
  - Product dose omission [Unknown]
  - Product supply issue [Unknown]
